FAERS Safety Report 18271851 (Version 2)
Quarter: 2024Q1

REPORT INFORMATION
  Report Type: Spontaneous
  Country: CA (occurrence: None)
  Receive Date: 20200916
  Receipt Date: 20240227
  Transmission Date: 20240409
  Serious: Yes (Hospitalization, Other)
  Sender: FDA-Public Use
  Company Number: 2020SF16529

PATIENT
  Age: 66 Year
  Sex: Male

DRUGS (16)
  1. DURVALUMAB [Suspect]
     Active Substance: DURVALUMAB
     Indication: Pancreatic carcinoma
     Dosage: 1500 MG UNK (1 EVERY 4 WEEK)1500.0MG UNKNOWN
     Route: 042
  2. TREMELIMUMAB [Suspect]
     Active Substance: TREMELIMUMAB
     Indication: Pancreatic carcinoma
     Dosage: 75 MG, UNK (1 EVERY 4 WEEK)75.0MG UNKNOWN
     Route: 042
  3. ABRAXANE [Suspect]
     Active Substance: PACLITAXEL
     Indication: Pancreatic carcinoma
     Dosage: 188.75, UNK (3 EVERY 28 WEEK)188.75MG UNKNOWN
     Route: 042
  4. GEMCITABINE [Suspect]
     Active Substance: GEMCITABINE
     Indication: Pancreatic carcinoma
     Dosage: 1510 MG, UNK (EVERY 28 DAYS)1510.0MG UNKNOWN
     Route: 042
  5. ACETAMINOPHEN [Concomitant]
     Active Substance: ACETAMINOPHEN
     Indication: Abdominal pain
  6. ACETIC ACID [Concomitant]
     Active Substance: ACETIC ACID
     Indication: Routine health maintenance
  7. ASCORBIC ACID [Concomitant]
     Active Substance: ASCORBIC ACID
     Indication: Routine health maintenance
  8. CANNABIS SATIVA FLOWERING TOP [Concomitant]
     Active Substance: CANNABIS SATIVA FLOWERING TOP
     Indication: Routine health maintenance
  9. COD LIVER OIL [Concomitant]
     Active Substance: COD LIVER OIL
     Indication: Routine health maintenance
  10. COLLOIDAL SILVER [Concomitant]
     Active Substance: SILVER
     Indication: Routine health maintenance
  11. GABAPENTIN [Concomitant]
     Active Substance: GABAPENTIN
     Indication: Paraesthesia
  12. KEFLEX [Concomitant]
     Active Substance: CEPHALEXIN
     Indication: Infection
  13. LEVOTHYROXINE [Concomitant]
     Active Substance: LEVOTHYROXINE\LEVOTHYROXINE SODIUM
     Indication: Hypothyroidism
  14. VITAMINS [Concomitant]
     Active Substance: VITAMINS
     Indication: Routine health maintenance
  15. VITAMIN B COMPLEX [Concomitant]
     Active Substance: CYANOCOBALAMIN\DEXPANTHENOL\NIACINAMIDE\PYRIDOXINE HYDROCHLORIDE\RIBOFLAVIN 5^-PHOSPHATE SODIUM\THIA
     Indication: Routine health maintenance
  16. VITAMIN C [Concomitant]
     Active Substance: ASCORBIC ACID
     Indication: Routine health maintenance

REACTIONS (2)
  - Anaemia [Not Recovered/Not Resolved]
  - Upper gastrointestinal haemorrhage [Not Recovered/Not Resolved]
